FAERS Safety Report 9696816 (Version 1)
Quarter: 2013Q4

REPORT INFORMATION
  Report Type: Spontaneous
  Country: DE (occurrence: DE)
  Receive Date: 20131119
  Receipt Date: 20131119
  Transmission Date: 20140711
  Serious: Yes (Other)
  Sender: FDA-Public Use
  Company Number: GXKR2013DE003598

PATIENT
  Age: 32 Year
  Sex: Female
  Weight: 85 kg

DRUGS (11)
  1. DICLAC [Suspect]
     Indication: PSORIATIC ARTHROPATHY
     Dosage: 150 [MG/D ]/ EXACT END OF THERAPY NOT KNOWN: ^TILL JANUARY 2010^
     Route: 048
     Dates: start: 20091126, end: 20100105
  2. REMICADE [Suspect]
     Indication: PSORIATIC ARTHROPATHY
     Dosage: 400 [MG ]/ 300-400 MG: 17.72009, 21.12.2009, 7.1.2010, 9.2.2010
     Route: 042
     Dates: start: 20090624, end: 20100209
  3. DOLORMIN MIGRAENE (IBUPROFEN LYSINE) [Concomitant]
     Indication: MIGRAINE
     Dosage: 2 TABLETS ONLY (JULY /AUGUST 2009)
     Route: 048
  4. PREDNISOLON [Concomitant]
     Indication: PSORIATIC ARTHROPATHY
     Dosage: 20 [MG/D ]
     Route: 048
     Dates: start: 20091126, end: 20100115
  5. JURNISTA [Concomitant]
     Indication: PSORIATIC ARTHROPATHY
     Dosage: 8 [MG/D ]
     Route: 048
     Dates: start: 20091126, end: 20100115
  6. PANTOZOL [Concomitant]
     Indication: GASTRITIS PROPHYLAXIS
     Dosage: UNK UKN, UNK
     Route: 048
     Dates: start: 20091126, end: 20100322
  7. HYDROCORTISONE [Concomitant]
     Indication: PSORIASIS
     Dosage: UNK UKN, UNK
     Route: 003
     Dates: start: 20091119, end: 20091123
  8. BIFITERAL [Concomitant]
     Indication: CONSTIPATION
     Dosage: UNK UKN, UNK
     Route: 048
     Dates: start: 20091123, end: 20091130
  9. DIPIDOLOR [Concomitant]
     Indication: PSORIATIC ARTHROPATHY
     Dosage: 45 [MG/D ]
     Route: 048
  10. PARACETAMOL [Concomitant]
     Indication: PSORIATIC ARTHROPATHY
     Dosage: 2000 [MG/D ]
     Route: 048
  11. FOLSAEURE [Concomitant]
     Indication: PROPHYLAXIS OF NEURAL TUBE DEFECT
     Dosage: UNK UKN, UNK

REACTIONS (1)
  - Oligohydramnios [Recovered/Resolved]
